FAERS Safety Report 4357738-4 (Version None)
Quarter: 2004Q2

REPORT INFORMATION
  Report Type: 
  Country: None (occurrence: None)
  Receive Date: 20040510
  Receipt Date: 20040430
  Transmission Date: 20050107
  Serious: Yes (Hospitalization)
  Sender: FDA-Public Use
  Company Number: 2004211718GB

PATIENT
  Age: 71 Year
  Sex: Female
  Weight: 75 kg

DRUGS (14)
  1. DETRUSITOL [Suspect]
     Indication: URINARY INCONTINENCE
     Dosage: 2 MG, BID, ORAL
     Route: 048
     Dates: start: 20040405, end: 20040406
  2. SALMETEROL (SALMETEROL) [Concomitant]
  3. BECLOMETHASONE DIPROPIONATE [Concomitant]
  4. TERBUTALINE SULFATE [Concomitant]
  5. ASPIRIN [Concomitant]
  6. DILTIAZEM [Concomitant]
  7. THYROXIN (LEVOTHYROXINE SODIUM) [Concomitant]
  8. SIMVASTATIN [Concomitant]
  9. ISOSORBIDE MONONITRATE [Concomitant]
  10. LANSOPRAZOLE [Concomitant]
  11. SENNA (SENNA) [Concomitant]
  12. IPRATROPIUM BROMIDE [Concomitant]
  13. MOVICOL [Concomitant]
  14. TRAMADOL HCL [Concomitant]

REACTIONS (1)
  - HYPOTENSION [None]
